FAERS Safety Report 12816759 (Version 1)
Quarter: 2016Q4

REPORT INFORMATION
  Report Type: Report from Study
  Country: US (occurrence: US)
  Receive Date: 20161005
  Receipt Date: 20161005
  Transmission Date: 20170207
  Serious: No
  Sender: FDA-Public Use
  Company Number: US-AMGEN-USASP2015104106

PATIENT
  Age: 63 Year
  Sex: Female

DRUGS (1)
  1. PROLIA [Suspect]
     Active Substance: DENOSUMAB
     Indication: PRODUCT USED FOR UNKNOWN INDICATION
     Dosage: UNK
     Route: 065
     Dates: start: 2014

REACTIONS (11)
  - Diarrhoea [Unknown]
  - Tinnitus [Unknown]
  - Jaw disorder [Unknown]
  - Haemorrhoids [Unknown]
  - Paraesthesia [Unknown]
  - Defaecation urgency [Not Recovered/Not Resolved]
  - Drug dose omission [Unknown]
  - Myalgia [Unknown]
  - Incorrect drug administration duration [Unknown]
  - Faeces soft [Unknown]
  - Aphthous ulcer [Unknown]
